FAERS Safety Report 9132677 (Version 3)
Quarter: 2015Q2

REPORT INFORMATION
  Report Type: Report from Study
  Country: ES (occurrence: ES)
  Receive Date: 20130301
  Receipt Date: 20150618
  Transmission Date: 20150821
  Serious: Yes (Death, Other)
  Sender: FDA-Public Use
  Company Number: ES-BRISTOL-MYERS SQUIBB COMPANY-17418344

PATIENT
  Age: 64 Year
  Sex: Male

DRUGS (10)
  1. PLACEBO [Suspect]
     Active Substance: UNSPECIFIED INGREDIENT
     Indication: NON-SMALL CELL LUNG CANCER
     Dosage: 1428 MG, QCYCLE
     Route: 042
     Dates: start: 20121207, end: 20130215
  2. MELOXICAM. [Concomitant]
     Active Substance: MELOXICAM
     Indication: PRODUCT USED FOR UNKNOWN INDICATION
     Dosage: UNK
     Route: 065
     Dates: start: 20121224, end: 20130224
  3. BLINDED IPILIMUMAB [Suspect]
     Active Substance: IPILIMUMAB
     Indication: NON-SMALL CELL LUNG CANCER
     Dosage: 3512 MG, QCYCLE
     Route: 042
     Dates: start: 20121207, end: 20130215
  4. BLINDED IPILIMUMAB [Suspect]
     Active Substance: IPILIMUMAB
     Indication: NON-SMALL CELL LUNG CANCER
     Dosage: 1428 MG, QCYCLE
     Route: 042
     Dates: start: 20121207, end: 20130215
  5. BLINDED PACLITAXEL [Suspect]
     Active Substance: PACLITAXEL
     Indication: NON-SMALL CELL LUNG CANCER
     Dosage: 1428 MG, QCYCLE
     Route: 042
     Dates: start: 20121207, end: 20130215
  6. PLACEBO [Suspect]
     Active Substance: UNSPECIFIED INGREDIENT
     Indication: NON-SMALL CELL LUNG CANCER
     Dosage: 3512 MG, QCYCLE
     Route: 042
     Dates: start: 20121207, end: 20130215
  7. PARACETAMOL [Concomitant]
     Active Substance: ACETAMINOPHEN
     Indication: PRODUCT USED FOR UNKNOWN INDICATION
     Dosage: UNK
     Route: 065
     Dates: start: 20121207, end: 20130224
  8. PLACEBO [Suspect]
     Active Substance: UNSPECIFIED INGREDIENT
     Indication: NON-SMALL CELL LUNG CANCER
     Dosage: 3168 MG, QCYCLE
     Route: 042
     Dates: start: 20121207, end: 20130215
  9. BLINDED CARBOPLATIN [Suspect]
     Active Substance: CARBOPLATIN
     Indication: NON-SMALL CELL LUNG CANCER
     Dosage: 3168 MG, QCYCLE
     Route: 042
     Dates: start: 20121207, end: 20130215
  10. BLINDED IPILIMUMAB [Suspect]
     Active Substance: IPILIMUMAB
     Indication: NON-SMALL CELL LUNG CANCER
     Dosage: 3168 MG, QCYCLE
     Route: 042
     Dates: start: 20121207, end: 20130215

REACTIONS (1)
  - Pneumonia [Fatal]

NARRATIVE: CASE EVENT DATE: 20130223
